FAERS Safety Report 4409286-0 (Version None)
Quarter: 2004Q3

REPORT INFORMATION
  Report Type: 
  Country: None (occurrence: None)
  Receive Date: 20040722
  Receipt Date: 20040712
  Transmission Date: 20050211
  Serious: Yes (Hospitalization, Other)
  Sender: FDA-Public Use
  Company Number: HQWYE032013JUL04

PATIENT
  Age: 18 Year
  Sex: Male
  Weight: 68.9 kg

DRUGS (11)
  1. RAPAMUNE [Suspect]
     Indication: IMMUNOSUPPRESSANT DRUG THERAPY
     Dosage: SEE IMAGE
     Route: 048
     Dates: start: 20020709, end: 20030801
  2. RAPAMUNE [Suspect]
     Indication: PROPHYLAXIS AGAINST TRANSPLANT REJECTION
     Dosage: SEE IMAGE
     Route: 048
     Dates: start: 20020709, end: 20030801
  3. RAPAMUNE [Suspect]
     Indication: IMMUNOSUPPRESSANT DRUG THERAPY
     Dosage: SEE IMAGE
     Route: 048
     Dates: start: 20030801
  4. RAPAMUNE [Suspect]
     Indication: PROPHYLAXIS AGAINST TRANSPLANT REJECTION
     Dosage: SEE IMAGE
     Route: 048
     Dates: start: 20030801
  5. CELLCEPT (MUCOPHENOLATE MOFETIL) [Concomitant]
  6. PREDNISONE [Concomitant]
  7. ZANTAC [Concomitant]
  8. ATENOLOL [Concomitant]
  9. IRON (IRON) [Concomitant]
  10. LIPITOR [Concomitant]
  11. ENALAPRIL MALEATE [Concomitant]

REACTIONS (7)
  - BLOOD CREATININE INCREASED [None]
  - BRONCHOPULMONARY ASPERGILLOSIS [None]
  - DRUG TOXICITY [None]
  - HYDROTHORAX [None]
  - PNEUMOTHORAX [None]
  - RENAL TUBULAR DISORDER [None]
  - VOMITING [None]
